FAERS Safety Report 19398026 (Version 1)
Quarter: 2021Q2

REPORT INFORMATION
  Report Type: Spontaneous
  Country: US (occurrence: US)
  Receive Date: 20210610
  Receipt Date: 20210610
  Transmission Date: 20210717
  Serious: Yes (Hospitalization)
  Sender: FDA-Public Use
  Company Number: US-AMGEN-USASP2021088214

PATIENT
  Sex: Female

DRUGS (2)
  1. KANJINTI [Suspect]
     Active Substance: TRASTUZUMAB-ANNS
     Indication: PRODUCT USED FOR UNKNOWN INDICATION
     Dosage: UNK
     Route: 065
  2. KANJINTI [Suspect]
     Active Substance: TRASTUZUMAB-ANNS
     Dosage: 400 MILLIGRAM
     Route: 065

REACTIONS (1)
  - Food poisoning [Unknown]

NARRATIVE: CASE EVENT DATE: 2021
